FAERS Safety Report 11166862 (Version 1)
Quarter: 2015Q2

REPORT INFORMATION
  Report Type: Report from Study
  Country: HK (occurrence: HK)
  Receive Date: 20150605
  Receipt Date: 20150605
  Transmission Date: 20150821
  Serious: Yes (Death, Hospitalization, Other)
  Sender: FDA-Public Use
  Company Number: HK-ROCHE-612305

PATIENT

DRUGS (9)
  1. TACROLIMUS. [Suspect]
     Active Substance: TACROLIMUS
     Indication: LUPUS NEPHRITIS
     Dosage: INITIAL DOSAGE 0.1 MG/KG/DAY IN TWO DIVIDED DOSES, REDUCED TO 0.06 MG/KG/DAY IF CLINICAL RESPONSE WA
     Route: 065
  2. AZATHIOPRINE. [Suspect]
     Active Substance: AZATHIOPRINE
     Indication: LUPUS NEPHRITIS
     Dosage: MAINTAINANCE
     Route: 065
  3. MYCOPHENOLATE MOFETIL. [Suspect]
     Active Substance: MYCOPHENOLATE MOFETIL
     Dosage: LOW DOSE MAINTANENCE
     Route: 065
  4. TACROLIMUS. [Suspect]
     Active Substance: TACROLIMUS
     Dosage: LOW DOSE MAINTANENCE
     Route: 065
  5. MYCOPHENOLATE MOFETIL. [Suspect]
     Active Substance: MYCOPHENOLATE MOFETIL
     Indication: LUPUS NEPHRITIS
     Dosage: 2 G/DAY INITIALLY, AUGMENTED TO UP TO 3 G/DAY IF CLINICAL RESPONSE WAS SUBOPTIMAL AT MONTH 3 IN TWO
     Route: 065
  6. PREDNISOLONE. [Suspect]
     Active Substance: PREDNISOLONE
     Dosage: DOSE TAPERED BY 5 MG/DAY EVERY WEEK TO {10 MG/DAY
     Route: 048
  7. CYCLOPHOSPHAMIDE. [Suspect]
     Active Substance: CYCLOPHOSPHAMIDE
     Indication: LUPUS NEPHRITIS
     Dosage: MAINTAINANCE
     Route: 065
  8. PREDNISOLONE. [Suspect]
     Active Substance: PREDNISOLONE
     Indication: LUPUS NEPHRITIS
     Dosage: 6 WEEKS
     Route: 048
  9. PREDNISOLONE. [Suspect]
     Active Substance: PREDNISOLONE
     Dosage: HIGH-DOSE MAINTAINENCE
     Route: 048

REACTIONS (5)
  - Infection [Unknown]
  - Sepsis [Fatal]
  - Neoplasm malignant [Fatal]
  - Chronic kidney disease [Unknown]
  - Renal disorder [Unknown]
